FAERS Safety Report 23332278 (Version 3)
Quarter: 2024Q3

REPORT INFORMATION
  Report Type: Spontaneous
  Country: JP (occurrence: JP)
  Receive Date: 20231222
  Receipt Date: 20240705
  Transmission Date: 20241016
  Serious: Yes (Other)
  Sender: MERCK
  Company Number: JP-MSD-M2023-54905

PATIENT
  Age: 61 Year
  Sex: Female

DRUGS (4)
  1. KEYTRUDA [Suspect]
     Active Substance: PEMBROLIZUMAB
     Indication: Cervix carcinoma
     Dosage: 200 MILLIGRAM, Q3W
     Route: 041
     Dates: start: 202302, end: 2023
  2. PACLITAXEL [Suspect]
     Active Substance: PACLITAXEL
     Indication: Cervix carcinoma
     Dosage: UNK
     Route: 065
     Dates: start: 202302
  3. CARBOPLATIN [Suspect]
     Active Substance: CARBOPLATIN
     Indication: Cervix carcinoma
     Dosage: UNK
     Route: 065
     Dates: start: 202302
  4. BEVACIZUMAB [Suspect]
     Active Substance: BEVACIZUMAB
     Indication: Cervix carcinoma
     Dosage: UNK
     Route: 065

REACTIONS (2)
  - Enterocolitis [Recovering/Resolving]
  - Bladder cancer [Recovering/Resolving]

NARRATIVE: CASE EVENT DATE: 20230601
